FAERS Safety Report 21935421 (Version 5)
Quarter: 2023Q2

REPORT INFORMATION
  Report Type: Spontaneous
  Country: US (occurrence: US)
  Receive Date: 20230201
  Receipt Date: 20230419
  Transmission Date: 20230721
  Serious: Yes (Other)
  Sender: FDA-Public Use
  Company Number: US-INSMED, INC.-2023-00277-US

PATIENT
  Age: 62 Year
  Sex: Male

DRUGS (12)
  1. ARIKAYCE [Suspect]
     Active Substance: AMIKACIN
     Indication: Product used for unknown indication
     Dosage: 590 MILLIGRAM, QD
     Route: 055
     Dates: start: 20230105, end: 202303
  2. ELIQUIS [Suspect]
     Active Substance: APIXABAN
     Indication: Anticoagulant therapy
     Dosage: UNK
     Route: 065
  3. NUZYRA [Suspect]
     Active Substance: OMADACYCLINE
     Indication: Mycobacterium avium complex infection
     Dosage: 2 DOSAGE FORM, QD, 150 MG 2 TABLETS
     Route: 065
  4. SIVEXTRO [Suspect]
     Active Substance: TEDIZOLID PHOSPHATE
     Indication: Mycobacterium avium complex infection
     Dosage: 200 MILLIGRAM, QD
     Route: 065
  5. OXYGEN [Concomitant]
     Active Substance: OXYGEN
     Indication: Product used for unknown indication
     Route: 055
  6. LEVOTHYROXINE [Concomitant]
     Active Substance: LEVOTHYROXINE
     Indication: Thyroid disorder
     Route: 065
  7. PREDNISONE [Concomitant]
     Active Substance: PREDNISONE
     Indication: Product used for unknown indication
     Route: 065
  8. ADVAIR HFA [Concomitant]
     Active Substance: FLUTICASONE PROPIONATE\SALMETEROL XINAFOATE
     Indication: Product used for unknown indication
     Dosage: UNK
     Route: 055
  9. SPIRIVA [Concomitant]
     Active Substance: TIOTROPIUM BROMIDE MONOHYDRATE
     Indication: Product used for unknown indication
     Dosage: UNK
     Route: 055
  10. ALBUTEROL [Concomitant]
     Active Substance: ALBUTEROL
     Indication: Product used for unknown indication
     Dosage: UNK, ON EMERGENCY
     Route: 055
  11. MULTIVITAMIN IRON [Concomitant]
     Indication: Product used for unknown indication
     Dosage: UNK
     Route: 065
  12. PROBIOTICS NOS [Concomitant]
     Active Substance: PROBIOTICS NOS
     Indication: Product used for unknown indication
     Route: 065

REACTIONS (13)
  - Pulmonary oedema [Not Recovered/Not Resolved]
  - Limb injury [Recovered/Resolved]
  - Haemorrhage [Recovered/Resolved]
  - Nipple pain [Not Recovered/Not Resolved]
  - Secretion discharge [Not Recovered/Not Resolved]
  - Nasopharyngitis [Unknown]
  - Dysgeusia [Not Recovered/Not Resolved]
  - Productive cough [Not Recovered/Not Resolved]
  - Dyspnoea [Not Recovered/Not Resolved]
  - Product packaging difficult to open [Unknown]
  - Product package associated injury [Unknown]
  - Device leakage [Unknown]
  - Product design issue [Unknown]

NARRATIVE: CASE EVENT DATE: 20230101
